FAERS Safety Report 8405774-0 (Version None)
Quarter: 2012Q2

REPORT INFORMATION
  Report Type: 
  Country: None (occurrence: None)
  Receive Date: 20120529
  Receipt Date: 20060921
  Transmission Date: 20120825
  Serious: Yes (Hospitalization)
  Sender: FDA-Public Use
  Company Number: 02100-JPN-06-0485

PATIENT
  Age: 58 Year
  Sex: Male
  Weight: 83 kg

DRUGS (5)
  1. MICARDIS [Concomitant]
  2. SERMION (NICERGOLINE) [Concomitant]
  3. RENIVACE (ENLAPRIL MALEATE) [Concomitant]
  4. SELBEX (TEPRENONE) [Concomitant]
  5. PLETAL [Suspect]
     Indication: CEREBRAL INFARCTION
     Dosage: 100 MG, BID, ORAL
     Route: 048
     Dates: start: 20040810

REACTIONS (4)
  - BRAIN CONTUSION [None]
  - WEIGHT INCREASED [None]
  - JAW FRACTURE [None]
  - ROAD TRAFFIC ACCIDENT [None]
